FAERS Safety Report 10037981 (Version 1)
Quarter: 2014Q1

REPORT INFORMATION
  Report Type: Spontaneous
  Country: US (occurrence: None)
  Receive Date: 20140306
  Receipt Date: 20140306
  Transmission Date: 20141002
  Serious: Yes (Hospitalization)
  Sender: FDA-Public Use
  Company Number: 163-21880-13082686

PATIENT
  Age: 76 Year
  Sex: Female

DRUGS (8)
  1. REVLIMID (LENALIDOMIDE) (CAPSULES) [Suspect]
     Indication: PLASMA CELL MYELOMA
     Dosage: 21 IN 21 D
     Route: 048
     Dates: start: 20091102
  2. CHERATUSSIN AC (CHERATUSSIN AC) [Concomitant]
  3. DEXAMETHASONE (DEXAMETHASONE) [Concomitant]
  4. LIPITOR (ATORVASTATIN) [Concomitant]
  5. LISINOPRIL (LISINOPRIL) [Concomitant]
  6. MIRALAX (MARCOGOL) [Concomitant]
  7. NEXIUM (ESOMEPRAZOLE) [Concomitant]
  8. TYLENOL WITH CODEINE (PANADEINE CO) [Concomitant]

REACTIONS (1)
  - Bronchitis [None]
